FAERS Safety Report 14401402 (Version 2)
Quarter: 2018Q1

REPORT INFORMATION
  Report Type: Spontaneous
  Country: JP (occurrence: JP)
  Receive Date: 20180117
  Receipt Date: 20180203
  Transmission Date: 20180509
  Serious: No
  Sender: FDA-Public Use
  Company Number: JP-AMGEN-JPNSP2018005582

PATIENT
  Sex: Female

DRUGS (1)
  1. REPATHA [Suspect]
     Active Substance: EVOLOCUMAB
     Indication: TYPE IIA HYPERLIPIDAEMIA
     Dosage: 140 MG, Q2WK
     Route: 058
     Dates: start: 20170729

REACTIONS (2)
  - Dysphagia [Recovered/Resolved]
  - Vascular wall hypertrophy [Recovered/Resolved]

NARRATIVE: CASE EVENT DATE: 20171128
